FAERS Safety Report 11512947 (Version 2)
Quarter: 2015Q3

REPORT INFORMATION
  Report Type: Spontaneous
  Country: US (occurrence: US)
  Receive Date: 20150903
  Receipt Date: 20150903
  Transmission Date: 20151125
  Serious: No
  Sender: FDA-Public Use
  Company Number: US-ELI_LILLY_AND_COMPANY-US201001000848

PATIENT
  Age: 40 Year
  Sex: Female

DRUGS (1)
  1. HUMALOG [Suspect]
     Active Substance: INSULIN LISPRO
     Indication: DIABETES MELLITUS
     Dosage: 30 U, DAILY (1/D)
     Route: 058
     Dates: start: 20100101

REACTIONS (8)
  - White blood cell count increased [Unknown]
  - Nausea [Unknown]
  - Feeling abnormal [Unknown]
  - Drug ineffective [Recovered/Resolved]
  - Malaise [Unknown]
  - Blood ketone body present [Unknown]
  - Hyperglycaemia [Recovered/Resolved]
  - Polyuria [Unknown]

NARRATIVE: CASE EVENT DATE: 20100102
